FAERS Safety Report 11296298 (Version 1)
Quarter: 2015Q3

REPORT INFORMATION
  Report Type: Spontaneous
  Country: US (occurrence: US)
  Receive Date: 20150722
  Receipt Date: 20150722
  Transmission Date: 20151125
  Serious: Yes (Hospitalization, Other)
  Sender: FDA-Public Use
  Company Number: US-ELI_LILLY_AND_COMPANY-US200910004006

PATIENT
  Age: 66 Year
  Sex: Male

DRUGS (10)
  1. EFFIENT [Suspect]
     Active Substance: PRASUGREL HYDROCHLORIDE
     Dosage: 60 MG, DAILY (1/D)
     Dates: start: 20091012, end: 20091012
  2. ANGIOMAX [Concomitant]
     Active Substance: BIVALIRUDIN
  3. COUMADIN [Concomitant]
     Active Substance: WARFARIN SODIUM
     Dosage: 10 MG, UNK
     Dates: start: 20091012, end: 20091012
  4. ASPIRIN EC [Concomitant]
     Active Substance: ASPIRIN
     Dosage: 81 MG, UNK
     Dates: start: 20091014
  5. COUMADIN [Concomitant]
     Active Substance: WARFARIN SODIUM
     Dosage: 5 MG, UNK
     Dates: start: 20091009, end: 20091010
  6. ASPIRIN EC [Concomitant]
     Active Substance: ASPIRIN
     Dosage: 325 MG, UNK
     Dates: end: 20091013
  7. LOVENOX [Concomitant]
     Active Substance: ENOXAPARIN SODIUM
  8. EFFIENT [Suspect]
     Active Substance: PRASUGREL HYDROCHLORIDE
     Dosage: 10 MG, DAILY (1/D)
     Dates: start: 20091013, end: 20091015
  9. COUMADIN [Concomitant]
     Active Substance: WARFARIN SODIUM
     Dosage: 15 MG, UNK
     Dates: start: 20091013, end: 20091013
  10. COUMADIN [Concomitant]
     Active Substance: WARFARIN SODIUM
     Dosage: 10 MG, UNK
     Dates: start: 20091014, end: 20091014

REACTIONS (1)
  - Post procedural haemorrhage [Recovered/Resolved]

NARRATIVE: CASE EVENT DATE: 20091015
